FAERS Safety Report 9152901 (Version 1)
Quarter: 2013Q1

REPORT INFORMATION
  Report Type: Spontaneous
  Country: US (occurrence: US)
  Receive Date: 20130124
  Receipt Date: 20130124
  Transmission Date: 20140127
  Serious: Yes (Hospitalization, Other)
  Sender: FDA-Public Use
  Company Number: US-RB-048773-13

PATIENT
  Age: 59 Year
  Sex: Female

DRUGS (3)
  1. SUBOXONE FILM [Suspect]
     Indication: DRUG DEPENDENCE
     Dosage: SUBOXONE FILM
     Route: 060
     Dates: start: 201202
  2. SUBOXONE FILM [Suspect]
     Route: 060
  3. KLONOPIN [Concomitant]
     Indication: ANXIETY
     Dosage: DOSING DETAILS UNKNOWN
     Route: 065

REACTIONS (2)
  - Pneumonia [Recovered/Resolved]
  - Wrong technique in drug usage process [Not Recovered/Not Resolved]
